FAERS Safety Report 13076012 (Version 1)
Quarter: 2016Q4

REPORT INFORMATION
  Report Type: Spontaneous
  Country: CA (occurrence: CA)
  Receive Date: 20161230
  Receipt Date: 20161230
  Transmission Date: 20170207
  Serious: Yes (Hospitalization)
  Sender: FDA-Public Use
  Company Number: CA-TEVA-723787ACC

PATIENT
  Sex: Male

DRUGS (6)
  1. ABILIFY MAINTENA [Suspect]
     Active Substance: ARIPIPRAZOLE
     Indication: BIPOLAR DISORDER
  2. ABILIFY MAINTENA [Suspect]
     Active Substance: ARIPIPRAZOLE
     Indication: SCHIZOAFFECTIVE DISORDER
     Dosage: STARTED IN 2014 SUMMER. DISCONTINUED
     Dates: start: 2014
  3. LATUDA [Suspect]
     Active Substance: LURASIDONE HYDROCHLORIDE
     Indication: BIPOLAR DISORDER
  4. TEVA-OLANZAPINE [Suspect]
     Active Substance: OLANZAPINE
     Indication: SCHIZOAFFECTIVE DISORDER
     Dosage: STRENGTH: 10MG
  5. TEVA-OLANZAPINE [Suspect]
     Active Substance: OLANZAPINE
     Indication: BIPOLAR DISORDER
  6. LATUDA [Suspect]
     Active Substance: LURASIDONE HYDROCHLORIDE
     Indication: SCHIZOAFFECTIVE DISORDER
     Dosage: WAS ON LATUDA FOR 3 MONTHS

REACTIONS (5)
  - Hallucination [Unknown]
  - Hallucination, visual [None]
  - Psychotic disorder [Unknown]
  - Depression [Unknown]
  - Weight decreased [Unknown]
